FAERS Safety Report 8482569-3 (Version None)
Quarter: 2012Q3

REPORT INFORMATION
  Report Type: 
  Country: None (occurrence: None)
  Receive Date: 20120702
  Receipt Date: 20120628
  Transmission Date: 20120928
  Serious: No
  Sender: FDA-Public Use
  Company Number: US-TEVA-345770USA

PATIENT
  Sex: Male

DRUGS (8)
  1. PRAVASTATIN [Concomitant]
     Route: 048
  2. COMBIVENT [Concomitant]
     Route: 055
  3. DIGOXIN [Concomitant]
     Route: 048
  4. LISINOPRIL [Concomitant]
     Route: 048
  5. PROAIR HFA [Suspect]
     Indication: DYSPNOEA
     Route: 055
     Dates: start: 20120413
  6. CARVEDILOL [Concomitant]
     Route: 048
  7. IRON [Concomitant]
     Route: 048
  8. ADVAIR DISKUS 100/50 [Concomitant]
     Route: 055

REACTIONS (1)
  - DYSPNOEA [None]
